FAERS Safety Report 4339252-5 (Version None)
Quarter: 2004Q2

REPORT INFORMATION
  Report Type: 
  Country: None (occurrence: None)
  Receive Date: 20040414
  Receipt Date: 20040414
  Transmission Date: 20050107
  Serious: Yes (Life-Threatening, Hospitalization)
  Sender: FDA-Public Use
  Company Number: None

PATIENT
  Age: 64 Year
  Sex: Male
  Weight: 96.2 kg

DRUGS (2)
  1. SIMVASTATIN [Suspect]
     Indication: BLOOD CHOLESTEROL
     Dosage: 40 MG, 1 QPM, ORAL
     Route: 048
     Dates: start: 20040112
  2. GEMFIBROZIL [Suspect]
     Dosage: 600 MG BI, BID , ORAL
     Route: 048

REACTIONS (1)
  - RHABDOMYOLYSIS [None]
